FAERS Safety Report 8807525 (Version 4)
Quarter: 2012Q4

REPORT INFORMATION
  Report Type: 
  Country: JP (occurrence: JP)
  Receive Date: 20120925
  Receipt Date: 20121127
  Transmission Date: 20130627
  Serious: Yes (Hospitalization, Other)
  Sender: FDA-Public Use
  Company Number: JP-PFIZER INC-2012201099

PATIENT
  Age: 79 Year
  Sex: Female
  Weight: 53 kg

DRUGS (6)
  1. WYPAX [Suspect]
     Dosage: 0.5 mg, 2x/day
     Route: 048
     Dates: end: 20120814
  2. LEVOFLOXACIN [Suspect]
     Indication: URINARY TRACT INFECTION
     Dosage: 100 mg, 4x/day
     Route: 048
     Dates: start: 20120813, end: 20120814
  3. LENDORMIN [Suspect]
     Indication: INSOMNIA
     Dosage: 0.25 mg, 1x/day
     Route: 048
     Dates: end: 20120814
  4. AMLODIN [Concomitant]
     Indication: HYPERTENSION
     Dosage: 2.5 mg, 1x/day
     Route: 048
     Dates: end: 20120814
  5. GASTER [Concomitant]
     Dosage: 20 mg, 1x/day
     Route: 048
     Dates: end: 20120814
  6. ONE-ALPHA [Concomitant]
     Indication: OSTEOPOROSIS
     Dosage: 1.0 ug, 1x/day
     Route: 048
     Dates: end: 20120814

REACTIONS (2)
  - Hyperammonaemia [Recovering/Resolving]
  - Loss of consciousness [Recovered/Resolved]
